FAERS Safety Report 25279806 (Version 1)
Quarter: 2025Q2

REPORT INFORMATION
  Report Type: Report from Study
  Country: GB (occurrence: GB)
  Receive Date: 20250507
  Receipt Date: 20250507
  Transmission Date: 20250717
  Serious: Yes (Other)
  Sender: SANOFI AVENTIS
  Company Number: GB-SA-2024SA330372

PATIENT
  Age: 18 Year
  Sex: Female

DRUGS (1)
  1. DUPILUMAB [Suspect]
     Active Substance: DUPILUMAB
     Indication: Dermatitis atopic
     Dosage: 300 MG, QOW
     Route: 058
     Dates: start: 202312

REACTIONS (9)
  - Syncope [Recovering/Resolving]
  - Dermatitis atopic [Unknown]
  - Intentional dose omission [Unknown]
  - Eczema [Unknown]
  - Intentional dose omission [Unknown]
  - Feeling hot [Recovering/Resolving]
  - Stress [Unknown]
  - Dizziness [Recovering/Resolving]
  - Eczema [Unknown]

NARRATIVE: CASE EVENT DATE: 20240101
